FAERS Safety Report 9844744 (Version 1)
Quarter: 2014Q1

REPORT INFORMATION
  Report Type: Spontaneous
  Country: ES (occurrence: None)
  Receive Date: 20140122
  Receipt Date: 20140122
  Transmission Date: 20141002
  Serious: Yes (Other)
  Sender: FDA-Public Use
  Company Number: KAD201401-000052

PATIENT
  Sex: 0

DRUGS (1)
  1. INTERFERON ALFACON-L [Suspect]

REACTIONS (2)
  - Factor VIII deficiency [None]
  - Acquired haemophilia [None]
